FAERS Safety Report 12768593 (Version 1)
Quarter: 2016Q3

REPORT INFORMATION
  Report Type: Spontaneous
  Country: SI (occurrence: SI)
  Receive Date: 20160921
  Receipt Date: 20160921
  Transmission Date: 20161109
  Serious: Yes (Hospitalization, Other)
  Sender: FDA-Public Use
  Company Number: SI-AMGEN-SVNSP2016126279

PATIENT
  Age: 61 Year
  Sex: Female

DRUGS (6)
  1. FOLINIC ACID [Concomitant]
     Active Substance: LEUCOVORIN
     Dosage: UNK
  2. OXALIPLATIN. [Suspect]
     Active Substance: OXALIPLATIN
     Indication: METASTASES TO LUNG
  3. 5 FU [Concomitant]
     Active Substance: FLUOROURACIL
     Dosage: UNK
  4. VECTIBIX [Suspect]
     Active Substance: PANITUMUMAB
     Indication: PRODUCT USED FOR UNKNOWN INDICATION
     Dosage: UNK
     Route: 065
  5. OXALIPLATIN. [Suspect]
     Active Substance: OXALIPLATIN
     Indication: COLON CANCER
     Dosage: UNK
     Route: 065
  6. OXALIPLATIN. [Suspect]
     Active Substance: OXALIPLATIN
     Indication: METASTASIS

REACTIONS (10)
  - Cancer surgery [Unknown]
  - Hypersensitivity [Unknown]
  - Hepatectomy [Unknown]
  - Metastasis [Unknown]
  - Tumour marker increased [Unknown]
  - Paraesthesia [Unknown]
  - Weight decreased [Unknown]
  - Bone marrow toxicity [Unknown]
  - Ileus [Unknown]
  - Skin toxicity [Unknown]

NARRATIVE: CASE EVENT DATE: 201510
